FAERS Safety Report 8128521-9 (Version None)
Quarter: 2012Q1

REPORT INFORMATION
  Report Type: 
  Country: None (occurrence: None)
  Receive Date: 20120210
  Receipt Date: 20120131
  Transmission Date: 20120608
  Serious: Yes (Other)
  Sender: FDA-Public Use
  Company Number: US-JNJFOC-20111202040

PATIENT
  Sex: Male
  Weight: 11.5 kg

DRUGS (8)
  1. HYDROCORTISONE [Concomitant]
     Route: 042
  2. BENADRYL [Concomitant]
     Indication: PREMEDICATION
     Route: 065
  3. REMICADE [Suspect]
     Indication: CROHN'S DISEASE
     Dosage: 14TH INFUSION
     Route: 042
     Dates: start: 20111202
  4. REMICADE [Suspect]
     Dosage: 5TH INFUSION
     Route: 042
     Dates: start: 20110314
  5. REMICADE [Suspect]
     Route: 042
     Dates: start: 20101104
  6. REMICADE [Suspect]
     Dosage: 2ND INFUSION
     Route: 042
     Dates: start: 20101118
  7. ACETAMINOPHEN [Concomitant]
     Indication: PREMEDICATION
     Route: 065
  8. HYDROCORTISONE [Concomitant]
     Indication: PREMEDICATION
     Route: 065
     Dates: start: 20110314

REACTIONS (7)
  - INCORRECT ROUTE OF DRUG ADMINISTRATION [None]
  - RASH MACULAR [None]
  - INFUSION RELATED REACTION [None]
  - RASH [None]
  - SWELLING FACE [None]
  - URTICARIA [None]
  - OCULAR HYPERAEMIA [None]
